FAERS Safety Report 17783216 (Version 6)
Quarter: 2022Q2

REPORT INFORMATION
  Report Type: Spontaneous
  Country: US (occurrence: US)
  Receive Date: 20200514
  Receipt Date: 20220614
  Transmission Date: 20220721
  Serious: Yes (Other)
  Sender: FDA-Public Use
  Company Number: US-PFIZER INC-2020157235

PATIENT
  Age: 53 Year
  Sex: Female

DRUGS (1)
  1. XELJANZ XR [Suspect]
     Active Substance: TOFACITINIB CITRATE
     Indication: Rheumatoid arthritis
     Dosage: 11 MG, DAILY
     Route: 048
     Dates: start: 202001, end: 202109

REACTIONS (10)
  - Rheumatoid arthritis [Unknown]
  - Insomnia [Not Recovered/Not Resolved]
  - Periorbital swelling [Not Recovered/Not Resolved]
  - Swelling face [Not Recovered/Not Resolved]
  - Condition aggravated [Unknown]
  - Sinusitis [Unknown]
  - Faeces soft [Unknown]
  - COVID-19 [Recovered/Resolved]
  - Hepatic enzyme increased [Recovered/Resolved]
  - Inflammatory marker increased [Unknown]

NARRATIVE: CASE EVENT DATE: 20200101
